FAERS Safety Report 7646551-8 (Version None)
Quarter: 2011Q3

REPORT INFORMATION
  Report Type: 
  Country: None (occurrence: None)
  Receive Date: 20110801
  Receipt Date: 20110721
  Transmission Date: 20111222
  Serious: Yes (Hospitalization)
  Sender: FDA-Public Use
  Company Number: DE-US-EMD SERONO, INC.-7073332

PATIENT
  Sex: Female
  Weight: 40 kg

DRUGS (2)
  1. SAIZEN [Suspect]
     Indication: GROWTH HORMONE DEFICIENCY
     Route: 058
  2. SAIZEN [Suspect]
     Route: 058
     Dates: start: 20100908

REACTIONS (1)
  - APPENDICECTOMY [None]
